FAERS Safety Report 9847382 (Version 10)
Quarter: 2015Q2

REPORT INFORMATION
  Report Type: Spontaneous
  Country: US (occurrence: US)
  Receive Date: 20140127
  Receipt Date: 20150504
  Transmission Date: 20150821
  Serious: Yes (Hospitalization, Disabling, Other)
  Sender: FDA-Public Use
  Company Number: US-009507513-1401USA011315

PATIENT
  Sex: Female
  Weight: 55.78 kg

DRUGS (8)
  1. FOSAMAX [Suspect]
     Active Substance: ALENDRONATE SODIUM
     Dosage: 70 MG, QW
     Route: 048
     Dates: start: 2003, end: 200701
  2. GNC CALCIMATE PLUS 800 [Concomitant]
     Dosage: 1600 MG, QD
     Route: 048
     Dates: start: 1994
  3. FOSAMAX PLUS D [Suspect]
     Active Substance: ALENDRONATE SODIUM\CHOLECALCIFEROL
     Indication: OSTEOPENIA
     Dosage: 70 MG/2800 MG, QW
     Route: 048
     Dates: start: 20070123, end: 20080125
  4. FOSAMAX [Suspect]
     Active Substance: ALENDRONATE SODIUM
     Dosage: 5 MG, QD
     Route: 048
     Dates: start: 20011116, end: 20030602
  5. VITAMINS (UNSPECIFIED) [Concomitant]
     Active Substance: VITAMINS
     Dosage: 1 DF, QD
     Route: 048
     Dates: start: 1994
  6. OMEGA-3 MARINE TRIGLYCERIDES [Concomitant]
     Active Substance: FISH OIL
     Dosage: 900 MG, QD
     Dates: start: 1994
  7. FOSAMAX [Suspect]
     Active Substance: ALENDRONATE SODIUM
     Indication: OSTEOPENIA
     Dosage: 10 MG, QD
     Route: 048
     Dates: start: 199702, end: 200011
  8. ALENDRONATE SODIUM. [Suspect]
     Active Substance: ALENDRONATE SODIUM
     Indication: OSTEOPENIA
     Dosage: 70 MG, QW
     Route: 048
     Dates: start: 20080125, end: 201212

REACTIONS (28)
  - Intramedullary rod insertion [Unknown]
  - Atypical femur fracture [Recovered/Resolved]
  - Impaired healing [Unknown]
  - Cartilage injury [Unknown]
  - Blood phosphorus increased [Unknown]
  - Osteoporosis [Unknown]
  - Arthritis [Unknown]
  - Foot fracture [Unknown]
  - Drug ineffective [Unknown]
  - Internal fixation of fracture [Unknown]
  - Loss of consciousness [Unknown]
  - Muscular weakness [Unknown]
  - Anaemia [Unknown]
  - Blood cholesterol increased [Unknown]
  - Joint lock [Unknown]
  - Blood pressure orthostatic abnormal [Unknown]
  - Adverse event [Unknown]
  - Lipoma excision [Unknown]
  - Retinal detachment [Unknown]
  - Foot fracture [Unknown]
  - Nerve compression [Unknown]
  - Wrist fracture [Not Recovered/Not Resolved]
  - Atypical femur fracture [Recovering/Resolving]
  - Hypothyroidism [Unknown]
  - Muscular weakness [Unknown]
  - Fatigue [Unknown]
  - Loss of consciousness [Unknown]
  - Fall [Unknown]

NARRATIVE: CASE EVENT DATE: 199908
